FAERS Safety Report 23977345 (Version 2)
Quarter: 2024Q3

REPORT INFORMATION
  Report Type: Spontaneous
  Country: US (occurrence: US)
  Receive Date: 20240614
  Receipt Date: 20240724
  Transmission Date: 20241017
  Serious: Yes (Hospitalization, Other)
  Sender: FRESENIUS KABI
  Company Number: US-FreseniusKabi-FK202408984

PATIENT
  Age: 41 Year
  Sex: Male
  Weight: 60.6 kg

DRUGS (6)
  1. LEUCOVORIN CALCIUM [Suspect]
     Active Substance: LEUCOVORIN CALCIUM
     Indication: Colorectal cancer metastatic
     Dosage: D1, D15?DOSAGE FORM: SOLUTION FOR INJECTION?ROUTE OF ADMIN: INTRAVENOUS
     Dates: start: 20240513, end: 20240513
  2. FLUOROURACIL [Suspect]
     Active Substance: FLUOROURACIL
     Indication: Colorectal cancer metastatic
     Dosage: D1, D15?DOSAGE FORM: SOLUTION FOR INFUSION?ROUTE OF ADMIN: INTRAVENOUS
     Dates: start: 20240513, end: 20240513
  3. FLUOROURACIL [Suspect]
     Active Substance: FLUOROURACIL
     Dosage: D1, D15?DOSAGE FORM: SOLUTION FOR INFUSION?ROUTE OF ADMIN: INTRAVENOUS
     Dates: start: 20240513, end: 20240513
  4. BEVACIZUMAB [Suspect]
     Active Substance: BEVACIZUMAB
     Indication: Colorectal cancer metastatic
     Dosage: DAY 1 (D1), D15?DOSAGE FORM: SOLUTION FOR INFUSION?ROUTE OF ADMIN: INTRACAVERNOUS
     Dates: start: 20240513, end: 20240513
  5. BEVACIZUMAB [Suspect]
     Active Substance: BEVACIZUMAB
     Dosage: D1, D15?ROA: INTRAVENOUS
     Dates: start: 20240513, end: 20240513
  6. IRINOTECAN HYDROCHLORIDE [Suspect]
     Active Substance: IRINOTECAN HYDROCHLORIDE
     Indication: Colorectal cancer metastatic
     Dosage: DAY 1 (D1), D15?DOSAGE FORM: SOLUTION FOR INFUSION?ROUTE OF ADMIN: INTRAVENOUS (NOT OTHERWISE SPECIF
     Dates: start: 20240513, end: 20240513

REACTIONS (3)
  - Intestinal obstruction [Not Recovered/Not Resolved]
  - Wound closure [Not Recovered/Not Resolved]
  - Procedural pain [Recovering/Resolving]

NARRATIVE: CASE EVENT DATE: 20240524
